FAERS Safety Report 6633596-X (Version None)
Quarter: 2010Q1

REPORT INFORMATION
  Report Type: 
  Country: None (occurrence: None)
  Receive Date: 20100312
  Receipt Date: 20091229
  Transmission Date: 20100710
  Serious: No
  Sender: FDA-Public Use
  Company Number: US-ABBOTT-10P-163-0617327-00

PATIENT
  Sex: Male

DRUGS (1)
  1. ERYTHROMYCIN BASE [Suspect]
     Indication: SKIN ULCER
     Dates: start: 20091219, end: 20091223

REACTIONS (3)
  - BLISTER [None]
  - RASH GENERALISED [None]
  - SWELLING FACE [None]
